FAERS Safety Report 12805212 (Version 3)
Quarter: 2016Q4

REPORT INFORMATION
  Report Type: Spontaneous
  Country: IT (occurrence: IT)
  Receive Date: 20161004
  Receipt Date: 20161108
  Transmission Date: 20170207
  Serious: Yes (Other)
  Sender: FDA-Public Use
  Company Number: IT-ROCHE-1837402

PATIENT
  Age: 41 Year
  Sex: Female

DRUGS (2)
  1. TOPAMAX [Suspect]
     Active Substance: TOPIRAMATE
     Indication: PRODUCT USED FOR UNKNOWN INDICATION
     Dosage: 50MG-FILM-COATED TABLETS 60 TABLETS
     Route: 048
     Dates: start: 20160914, end: 20160914
  2. VALIUM [Suspect]
     Active Substance: DIAZEPAM
     Indication: PRODUCT USED FOR UNKNOWN INDICATION
     Dosage: 5 MG/ML -BOTTLE CONTAINING 20 ML
     Route: 048
     Dates: start: 20160914, end: 20160914

REACTIONS (3)
  - Intentional overdose [Unknown]
  - Intentional self-injury [Unknown]
  - Sluggishness [Unknown]

NARRATIVE: CASE EVENT DATE: 20160914
